FAERS Safety Report 5504306-4 (Version None)
Quarter: 2007Q4

REPORT INFORMATION
  Report Type: 
  Country: None (occurrence: None)
  Receive Date: 20071030
  Receipt Date: 20071015
  Transmission Date: 20080405
  Serious: Yes (Hospitalization, Other)
  Sender: FDA-Public Use
  Company Number: 100#03#2007-04173

PATIENT
  Age: 76 Year
  Sex: Female

DRUGS (6)
  1. OMEPRAZOLE [Suspect]
     Indication: DRUG USE FOR UNKNOWN INDICATION
     Dosage: 20 MG
  2. PROPRANOLOL [Suspect]
     Indication: ANXIETY
     Dosage: 80 MG
  3. PROPRANOLOL [Suspect]
     Indication: ESSENTIAL TREMOR
     Dosage: 80 MG
  4. DONEPEZIL (DONEPEZIL) (DONEPEZIL) [Suspect]
     Indication: DRUG USE FOR UNKNOWN INDICATION
     Dosage: 10 MG
     Dates: start: 20050101
  5. ESCITALOPRAM [Suspect]
     Indication: DRUG USE FOR UNKNOWN INDICATION
     Dosage: 10 MG
  6. MIRTAZAPINE [Concomitant]

REACTIONS (8)
  - ANXIETY [None]
  - BLOOD PRESSURE INCREASED [None]
  - DEPRESSIVE SYMPTOM [None]
  - DRUG INTERACTION [None]
  - ESSENTIAL TREMOR [None]
  - SINUS BRADYCARDIA [None]
  - SYNCOPE [None]
  - TORSADE DE POINTES [None]
